FAERS Safety Report 5512513-X (Version None)
Quarter: 2007Q4

REPORT INFORMATION
  Report Type: 
  Country: None (occurrence: None)
  Receive Date: 20071112
  Receipt Date: 20070604
  Transmission Date: 20080405
  Serious: No
  Sender: FDA-Public Use
  Company Number: A0654069A

PATIENT
  Age: 70 Year
  Sex: Female

DRUGS (4)
  1. AVANDAMET [Suspect]
     Route: 048
  2. LISINOPRIL [Concomitant]
  3. UNSPECIFIED MEDICATION [Concomitant]
  4. PRIMAFEN [Concomitant]

REACTIONS (1)
  - VISION BLURRED [None]
